FAERS Safety Report 8273362-5 (Version None)
Quarter: 2012Q2

REPORT INFORMATION
  Report Type: 
  Country: None (occurrence: None)
  Receive Date: 20120411
  Receipt Date: 20120403
  Transmission Date: 20120825
  Serious: Yes (Hospitalization, Other)
  Sender: FDA-Public Use
  Company Number: PHHY2010CA60017

PATIENT
  Sex: Female

DRUGS (4)
  1. SANDOSTATIN LAR [Suspect]
     Dosage: 30 MG, TIW
     Route: 030
  2. SANDOSTATIN LAR [Suspect]
     Indication: CARCINOID TUMOUR
     Dosage: 30 MG, QMO
     Route: 030
     Dates: start: 20050307
  3. LOVENOX [Concomitant]
     Route: 058
  4. SANDOSTATIN LAR [Suspect]
     Dosage: 30 MG,EVERY 4 WEEKS
     Route: 030

REACTIONS (12)
  - FATIGUE [None]
  - ABDOMINAL PAIN UPPER [None]
  - PULMONARY EMBOLISM [None]
  - PAIN IN EXTREMITY [None]
  - MENORRHAGIA [None]
  - HAEMORRHAGE [None]
  - VAGINAL HAEMORRHAGE [None]
  - ARTHRALGIA [None]
  - NASOPHARYNGITIS [None]
  - PAIN [None]
  - ASTHENIA [None]
  - BLOOD PRESSURE INCREASED [None]
